FAERS Safety Report 7607230-6 (Version None)
Quarter: 2011Q3

REPORT INFORMATION
  Report Type: 
  Country: None (occurrence: None)
  Receive Date: 20110713
  Receipt Date: 20110708
  Transmission Date: 20111222
  Serious: Yes (Hospitalization, Other)
  Sender: FDA-Public Use
  Company Number: IT-PFIZER INC-2011155339

PATIENT
  Age: 51 Year
  Sex: Female

DRUGS (5)
  1. ACETAMINOPHEN [Suspect]
     Indication: SUICIDE ATTEMPT
     Dosage: 4.5 G, SINGLE
     Route: 048
     Dates: start: 20110416, end: 20110416
  2. DEPAKENE [Suspect]
     Indication: SUICIDE ATTEMPT
     Dosage: 7.5 G, SINGLE
     Route: 048
     Dates: start: 20110416, end: 20110416
  3. EN [Suspect]
     Indication: SUICIDE ATTEMPT
     Dosage: 20 ML, SINGLE
     Route: 048
     Dates: start: 20110416, end: 20110416
  4. XANAX [Suspect]
     Indication: SUICIDE ATTEMPT
     Dosage: 7.5 MG, SINGLE
     Route: 048
     Dates: start: 20110416, end: 20110416
  5. LASIX [Suspect]
     Indication: SUICIDE ATTEMPT
     Dosage: 125 MG, SINGLE
     Route: 048
     Dates: start: 20110416, end: 20110416

REACTIONS (4)
  - BRADYPHRENIA [None]
  - SUICIDE ATTEMPT [None]
  - BRADYKINESIA [None]
  - TRANSAMINASES INCREASED [None]
